FAERS Safety Report 6683141-8 (Version None)
Quarter: 2010Q2

REPORT INFORMATION
  Report Type: 
  Country: None (occurrence: None)
  Receive Date: 20100415
  Receipt Date: 20100413
  Transmission Date: 20101027
  Serious: Yes (Other)
  Sender: FDA-Public Use
  Company Number: IT-WYE-G05948910

PATIENT
  Sex: Female
  Weight: 70 kg

DRUGS (2)
  1. TEMSIROLIMUS [Suspect]
     Indication: ACUTE MYELOID LEUKAEMIA
     Dosage: 25 MG
     Dates: start: 20100316, end: 20100330
  2. EVOLTRA [Suspect]
     Indication: ACUTE MYELOID LEUKAEMIA
     Dosage: 34.6 MG
     Dates: start: 20100316, end: 20100330

REACTIONS (1)
  - SEPTIC SHOCK [None]
